FAERS Safety Report 13145789 (Version 5)
Quarter: 2017Q3

REPORT INFORMATION
  Report Type: Report from Study
  Country: KR (occurrence: KR)
  Receive Date: 20170124
  Receipt Date: 20170711
  Transmission Date: 20171127
  Serious: Yes (Other)
  Sender: FDA-Public Use
  Company Number: KR-ROCHE-1878639

PATIENT
  Age: 64 Year
  Sex: Male
  Weight: 64 kg

DRUGS (67)
  1. ATEZOLIZUMAB. [Suspect]
     Active Substance: ATEZOLIZUMAB
     Indication: COLORECTAL ADENOCARCINOMA
     Dosage: MOST RECENT DOSE: 27/DEC/2016 AT 15:10  EVERY 2 WEEKS
     Route: 042
     Dates: start: 20161213
  2. ESPERSON [Concomitant]
     Indication: DERMATITIS ACNEIFORM
     Route: 061
     Dates: start: 20170110, end: 20170207
  3. CODEIN [Concomitant]
     Active Substance: CODEINE
     Indication: COUGH
     Route: 048
     Dates: start: 20161213, end: 20170110
  4. CODEIN [Concomitant]
     Active Substance: CODEINE
     Route: 048
     Dates: start: 20170221, end: 20170227
  5. AMCILLIN [Concomitant]
     Indication: STOMATITIS
     Route: 048
     Dates: start: 20170110
  6. RESOLOR [Concomitant]
     Active Substance: PRUCALOPRIDE SUCCINATE
     Route: 048
     Dates: start: 20170414, end: 20170414
  7. CURAN [Concomitant]
     Active Substance: RANITIDINE HYDROCHLORIDE
     Indication: GASTRIC ULCER
     Route: 042
     Dates: start: 20170329, end: 20170331
  8. MEGACEF (SOUTH KOREA) [Concomitant]
     Indication: DECREASED APPETITE
     Route: 048
     Dates: start: 20170307, end: 20170329
  9. HYSONE (HYDROCORTISONE) [Concomitant]
     Active Substance: HYDROCORTISONE
     Indication: ADRENAL INSUFFICIENCY
     Route: 048
     Dates: start: 20170414
  10. SODIUM CHLORIDE. [Concomitant]
     Active Substance: SODIUM CHLORIDE
     Indication: HYPONATRAEMIA
     Route: 042
     Dates: start: 20170328, end: 20170328
  11. TAZOPERAN [Concomitant]
     Indication: INFECTION
     Route: 042
     Dates: start: 20170412, end: 20170419
  12. NORZYME [Concomitant]
     Indication: GASTRITIS
     Route: 048
     Dates: start: 20170413, end: 20170417
  13. SMECTA [Concomitant]
     Active Substance: MONTMORILLONITE
     Indication: CONSTIPATION
     Route: 048
     Dates: start: 20170331, end: 20170331
  14. DERMOFIX [Concomitant]
     Indication: DERMATITIS ACNEIFORM
     Route: 061
     Dates: start: 20170110, end: 20170207
  15. MYPOL (ACETAMINOPHEN/CODEINE PHOSPHATE/IBUPROFEN) [Concomitant]
     Indication: DERMATITIS ACNEIFORM
     Route: 048
     Dates: start: 20161227
  16. CODEIN [Concomitant]
     Active Substance: CODEINE
     Route: 048
     Dates: start: 20170411, end: 20170416
  17. DIABEX [Concomitant]
     Active Substance: METFORMIN HYDROCHLORIDE
     Indication: DIABETES MELLITUS
     Route: 048
  18. UREA. [Concomitant]
     Active Substance: UREA
     Indication: DERMATITIS ACNEIFORM
     Route: 061
     Dates: start: 20170126
  19. LIDOMAX [Concomitant]
     Indication: DERMATITIS ACNEIFORM
     Route: 061
     Dates: start: 20170126
  20. DIFLUCORTOLONE VALERATE [Concomitant]
     Active Substance: DIFLUCORTOLONE VALERATE
     Indication: DERMATITIS ACNEIFORM
     Route: 061
     Dates: start: 20170126
  21. RESOLOR [Concomitant]
     Active Substance: PRUCALOPRIDE SUCCINATE
     Indication: CONSTIPATION
     Route: 048
     Dates: start: 20170207, end: 20170411
  22. D-SORBITOL [Concomitant]
     Indication: CONSTIPATION
     Route: 054
     Dates: start: 20170330, end: 20170330
  23. MEGACE [Concomitant]
     Active Substance: MEGESTROL ACETATE
     Indication: DECREASED APPETITE
     Route: 048
     Dates: start: 20170414, end: 20170419
  24. IRCODON [Concomitant]
     Active Substance: OXYCODONE HYDROCHLORIDE
     Indication: BONE PAIN
     Route: 048
     Dates: start: 20170417
  25. PANTOLOC [Concomitant]
     Active Substance: PANTOPRAZOLE SODIUM
     Indication: GASTRITIS
     Route: 048
     Dates: start: 20170417, end: 20170424
  26. GLUPA [Concomitant]
     Active Substance: METFORMIN HYDROCHLORIDE
     Indication: DIABETES MELLITUS
     Route: 048
     Dates: start: 20170419, end: 20170427
  27. SMECTA [Concomitant]
     Active Substance: MONTMORILLONITE
     Indication: DIARRHOEA
     Route: 048
     Dates: start: 20161221, end: 20161221
  28. MINOCIN [Concomitant]
     Active Substance: MINOCYCLINE HYDROCHLORIDE
     Indication: DERMATITIS ACNEIFORM
     Route: 048
     Dates: start: 20161227, end: 20170126
  29. XYZAL [Concomitant]
     Active Substance: LEVOCETIRIZINE DIHYDROCHLORIDE
     Indication: PRURITUS
     Route: 048
     Dates: start: 20170110, end: 20170117
  30. STILNOX [Concomitant]
     Active Substance: ZOLPIDEM TARTRATE
     Indication: INSOMNIA
     Route: 048
     Dates: start: 20170110
  31. TOPISOL MILK LOTION [Concomitant]
     Route: 061
     Dates: start: 20170221
  32. MAGNESIUM OXIDE. [Concomitant]
     Active Substance: MAGNESIUM OXIDE
     Indication: CONSTIPATION
     Route: 048
     Dates: start: 20170221, end: 20170307
  33. DEXTROSE. [Concomitant]
     Active Substance: DEXTROSE
     Indication: DECREASED APPETITE
     Route: 042
     Dates: start: 20170321, end: 20170321
  34. ERDOSTEINE [Concomitant]
     Active Substance: ERDOSTEINE
     Indication: COUGH
     Route: 048
     Dates: start: 20170330, end: 20170416
  35. DUPHALAC EASY [Concomitant]
     Indication: CONSTIPATION
     Dosage: SYRUP
     Route: 048
     Dates: start: 20170307, end: 20170414
  36. DENOGAN [Concomitant]
     Active Substance: PROPACETAMOL HYDROCHLORIDE
     Indication: INFECTION
     Route: 042
     Dates: start: 20170412, end: 20170412
  37. CYNACTEN [Concomitant]
     Route: 042
     Dates: start: 20170414, end: 20170414
  38. TOPISOL MILK LOTION [Concomitant]
     Indication: DERMATITIS ACNEIFORM
     Route: 065
     Dates: start: 20170126
  39. AUGMENTIN [Concomitant]
     Active Substance: AMOXICILLIN\CLAVULANATE POTASSIUM
     Indication: INFECTION
     Route: 048
     Dates: start: 20170321, end: 20170328
  40. CURAN [Concomitant]
     Active Substance: RANITIDINE HYDROCHLORIDE
     Route: 048
     Dates: start: 20170412, end: 20170414
  41. BUSCOPAN [Concomitant]
     Active Substance: BUTYLSCOPOLAMINE BROMIDE
     Route: 030
     Dates: start: 20170413, end: 20170413
  42. SUPRAX (SOUTH KOREA) [Concomitant]
     Indication: INFECTION
     Route: 048
     Dates: start: 20170419, end: 20170427
  43. COBIMETINIB. [Suspect]
     Active Substance: COBIMETINIB
     Indication: COLORECTAL ADENOCARCINOMA
     Dosage: MOST RECENT DOSE: 02/JAN/2017
     Route: 048
     Dates: start: 20161213
  44. TALION (SOUTH KOREA) [Concomitant]
     Indication: PRURITUS
  45. PENIRAMIN [Concomitant]
     Indication: PRURITUS
     Route: 030
     Dates: start: 20170110, end: 20170110
  46. METFORMIN HYDROCHLORIDE. [Concomitant]
     Active Substance: METFORMIN HYDROCHLORIDE
     Indication: DIABETES MELLITUS
     Route: 048
  47. CRESTOR [Concomitant]
     Active Substance: ROSUVASTATIN CALCIUM
     Indication: HYPERTENSION
     Route: 048
  48. SOLONDO [Concomitant]
     Active Substance: PREDNISOLONE
     Indication: STOMATITIS
     Route: 048
     Dates: start: 20170110
  49. MOTILITONE [Concomitant]
     Active Substance: HERBALS
     Indication: DYSPEPSIA
     Route: 048
     Dates: start: 20170331, end: 20170419
  50. FREAMINE III NOS [Concomitant]
     Active Substance: AMINO ACIDS
     Route: 042
     Dates: start: 20170411, end: 20170411
  51. HUMULIN R [Concomitant]
     Active Substance: INSULIN HUMAN
     Route: 042
     Dates: start: 20170413, end: 20170413
  52. NOBIPROX [Concomitant]
     Indication: DERMATITIS ACNEIFORM
     Route: 061
     Dates: start: 20161227, end: 20170110
  53. TALION (SOUTH KOREA) [Concomitant]
     Indication: DERMATITIS ACNEIFORM
     Route: 048
     Dates: start: 20170110, end: 20170207
  54. GALVUS [Concomitant]
     Active Substance: VILDAGLIPTIN
     Indication: DIABETES MELLITUS
     Route: 048
  55. CONCOR [Concomitant]
     Active Substance: BISOPROLOL FUMARATE
     Dosage: CORONARY ARTERY OCCULUSIVE DISEASE
     Route: 048
  56. MOLSITON [Concomitant]
     Dosage: CORONARY ARTERY OCCULUSIVE DISEASE
     Route: 048
  57. AMINO ACID [Concomitant]
     Active Substance: AMINO ACIDS
     Indication: DECREASED APPETITE
     Route: 042
     Dates: start: 20170328, end: 20170328
  58. BEECOM HEXA [Concomitant]
     Route: 042
     Dates: start: 20170411, end: 20170411
  59. HYDROCORTISONE. [Concomitant]
     Active Substance: HYDROCORTISONE
     Indication: DERMATITIS ACNEIFORM
     Route: 061
     Dates: start: 20161227, end: 20170110
  60. DERMATOP [Concomitant]
     Active Substance: PREDNICARBATE
     Indication: DERMATITIS ACNEIFORM
     Route: 061
     Dates: start: 20170110, end: 20170207
  61. PENIRAMIN [Concomitant]
     Route: 048
     Dates: start: 20170110
  62. DOXYCYCLINE. [Concomitant]
     Active Substance: DOXYCYCLINE
     Indication: DERMATITIS ACNEIFORM
     Route: 065
     Dates: start: 20170126
  63. STOGAR [Concomitant]
     Active Substance: LAFUTIDINE
     Indication: DERMATITIS ACNEIFORM
     Route: 065
     Dates: start: 20170126
  64. TARGIN [Concomitant]
     Active Substance: NALOXONE HYDROCHLORIDE\OXYCODONE HYDROCHLORIDE
     Indication: DERMATITIS ACNEIFORM
     Route: 065
     Dates: start: 20170119
  65. CAROL-F [Concomitant]
     Indication: INFECTION
     Route: 048
     Dates: start: 20170321, end: 20170328
  66. ACETAMINOPHEN. [Concomitant]
     Active Substance: ACETAMINOPHEN
     Indication: INFECTION
     Route: 048
     Dates: start: 20170413, end: 20170413
  67. HUMALOG [Concomitant]
     Active Substance: INSULIN LISPRO
     Route: 058
     Dates: start: 20170417, end: 20170417

REACTIONS (1)
  - Maculopathy [Not Recovered/Not Resolved]

NARRATIVE: CASE EVENT DATE: 20170110
